FAERS Safety Report 4974879-9 (Version None)
Quarter: 2006Q1

REPORT INFORMATION
  Report Type: 
  Country: None (occurrence: None)
  Receive Date: 20060227
  Receipt Date: 20051109
  Transmission Date: 20060701
  Serious: No
  Sender: FDA-Public Use
  Company Number: PHEH2005US12404

PATIENT
  Sex: Female

DRUGS (1)
  1. ENABLEX [Suspect]
     Route: 065

REACTIONS (8)
  - BONE PAIN [None]
  - CONSTIPATION [None]
  - HEADACHE [None]
  - JOINT SWELLING [None]
  - NAUSEA [None]
  - OEDEMA PERIPHERAL [None]
  - SWELLING FACE [None]
  - THIRST [None]
